FAERS Safety Report 5582914-2 (Version None)
Quarter: 2008Q1

REPORT INFORMATION
  Report Type: 
  Country: None (occurrence: None)
  Receive Date: 20080107
  Receipt Date: 20071228
  Transmission Date: 20080703
  Serious: Yes (Death)
  Sender: FDA-Public Use
  Company Number: US-PURDUE-USA_2007_0030437

PATIENT
  Age: 56 Year
  Sex: Female
  Weight: 70 kg

DRUGS (9)
  1. OXYCONTIN [Suspect]
     Indication: BREAKTHROUGH PAIN
     Dosage: 5 MG, Q6H PRN
     Route: 048
  2. OPANA ER [Suspect]
     Indication: BACK PAIN
     Dosage: 20 MG, BID
     Route: 048
     Dates: start: 20070731
  3. VALIUM [Concomitant]
     Indication: DRUG USE FOR UNKNOWN INDICATION
     Dosage: UNK MG, UNK
     Route: 048
  4. PROTONIX [Concomitant]
     Indication: DRUG USE FOR UNKNOWN INDICATION
     Dosage: UNK MG, UNK
     Route: 048
  5. REGLAN [Concomitant]
     Indication: DRUG USE FOR UNKNOWN INDICATION
     Dosage: UNK MG, UNK
     Route: 048
  6. SYMBYAX [Concomitant]
     Indication: DRUG USE FOR UNKNOWN INDICATION
     Dosage: UNK MG, UNK
     Route: 048
  7. PROPYLTHIOURACIL [Concomitant]
     Indication: DRUG USE FOR UNKNOWN INDICATION
     Dosage: UNK MG, UNK
     Route: 048
  8. MEBCHAL [Concomitant]
     Indication: DRUG USE FOR UNKNOWN INDICATION
     Dosage: UNK, UNK
  9. OXYCONTIN [Suspect]
     Indication: BACK PAIN
     Dosage: 80 MG, TID
     Route: 048

REACTIONS (2)
  - ARRHYTHMIA [None]
  - MULTIPLE DRUG OVERDOSE [None]
